FAERS Safety Report 6315340-9 (Version None)
Quarter: 2009Q3

REPORT INFORMATION
  Report Type: 
  Country: None (occurrence: None)
  Receive Date: 20090819
  Receipt Date: 20090807
  Transmission Date: 20100115
  Serious: Yes (Death)
  Sender: FDA-Public Use
  Company Number: JP-PFIZER INC-2009254504

PATIENT
  Age: 48 Year

DRUGS (2)
  1. SILDENAFIL CITRATE [Suspect]
  2. ALCOHOL [Suspect]

REACTIONS (1)
  - ARRHYTHMIA [None]
